FAERS Safety Report 8352929-X (Version None)
Quarter: 2012Q2

REPORT INFORMATION
  Report Type: 
  Country: None (occurrence: None)
  Receive Date: 20120511
  Receipt Date: 20120502
  Transmission Date: 20120825
  Serious: Yes (Hospitalization)
  Sender: FDA-Public Use
  Company Number: FR-SANOFI-AVENTIS-2012SA030658

PATIENT
  Age: 53 Year
  Sex: Male

DRUGS (4)
  1. LOVENOX [Suspect]
     Indication: THROMBOSIS PROPHYLAXIS
     Route: 058
     Dates: start: 20120225, end: 20120228
  2. VALIUM [Suspect]
     Route: 048
     Dates: start: 20120225
  3. VITAMIN B1 AND B6 [Suspect]
     Route: 048
     Dates: start: 20120225
  4. PRIMPERAN TAB [Suspect]
     Indication: NAUSEA
     Route: 048
     Dates: start: 20120225

REACTIONS (1)
  - CYTOLYTIC HEPATITIS [None]
